FAERS Safety Report 7654255-0 (Version None)
Quarter: 2011Q3

REPORT INFORMATION
  Report Type: 
  Country: None (occurrence: None)
  Receive Date: 20110803
  Receipt Date: 20110727
  Transmission Date: 20111222
  Serious: Yes (Hospitalization, Other)
  Sender: FDA-Public Use
  Company Number: US-BAYER-201033280NA

PATIENT
  Age: 38 Year
  Sex: Female
  Weight: 63.492 kg

DRUGS (14)
  1. FIORICET [Concomitant]
  2. IBUPROFEN [Concomitant]
  3. ZITHROMAX [Concomitant]
  4. BUTALBITAL ACETAMINOPHEN AND CAFFEINE [Concomitant]
     Dosage: UNK
     Dates: start: 20050101, end: 20100101
  5. VERAMYST [Concomitant]
     Dosage: UNK
     Dates: start: 20070101, end: 20100101
  6. VERAMYST [Concomitant]
     Dosage: UNK
     Dates: start: 20090607, end: 20090804
  7. LEXAPRO [Concomitant]
     Dosage: UNK
     Dates: start: 20070101, end: 20100101
  8. AVELOX [Concomitant]
     Dosage: 400 MG, UNK
     Dates: start: 20090518
  9. YAZ [Suspect]
     Dosage: UNK
     Dates: start: 20080101, end: 20090101
  10. DROSPIRENONE AND ETHINYL ESTRADIOL [Suspect]
     Indication: CONTRACEPTION
     Dosage: UNK
     Route: 048
     Dates: start: 20080101, end: 20090101
  11. AZITHROMYCIN [Concomitant]
     Dosage: 500 MG, UNK
     Dates: start: 20090709, end: 20090812
  12. HALOBETASOL PROPIONATE [Concomitant]
  13. FLUCONAZOLE [Concomitant]
     Dosage: 150 MG, UNK
     Dates: start: 20090728
  14. YAZ [Suspect]
     Indication: CONTRACEPTION
     Dosage: UNK
     Route: 048
     Dates: start: 20070101, end: 20080101

REACTIONS (8)
  - PULMONARY EMBOLISM [None]
  - PAIN [None]
  - DEEP VEIN THROMBOSIS [None]
  - THROMBOSIS [None]
  - OEDEMA PERIPHERAL [None]
  - PULMONARY THROMBOSIS [None]
  - SWELLING [None]
  - ABASIA [None]
